FAERS Safety Report 5381692-X (Version None)
Quarter: 2007Q3

REPORT INFORMATION
  Report Type: 
  Country: None (occurrence: None)
  Receive Date: 20070705
  Receipt Date: 20070705
  Transmission Date: 20080115
  Serious: Yes (Other)
  Sender: FDA-Public Use
  Company Number: None

PATIENT
  Age: 77 Year
  Sex: Male

DRUGS (8)
  1. REVLIMID [Suspect]
     Indication: MULTIPLE MYELOMA
     Dosage: 10 MG DAILY FOR 21D/28D PO
     Route: 048
     Dates: start: 20070604, end: 20070628
  2. DEXAMETHASONE 0.5MG TAB [Concomitant]
  3. WARFARIN SODIUM [Concomitant]
  4. ASPIRIN [Concomitant]
  5. LOVASTATIN [Concomitant]
  6. METOPROLOL SUCCINATE [Concomitant]
  7. DIGOXIN [Concomitant]
  8. OMEPRAZOLE [Concomitant]

REACTIONS (1)
  - HYPOAESTHESIA [None]
